FAERS Safety Report 19911978 (Version 2)
Quarter: 2025Q1

REPORT INFORMATION
  Report Type: Other
  Country: CA (occurrence: CA)
  Receive Date: 20211004
  Receipt Date: 20250328
  Transmission Date: 20250409
  Serious: Yes (Life-Threatening, Hospitalization, Other)
  Sender: APOTEX
  Company Number: CA-APOTEX-2021AP043312

PATIENT
  Age: 52 Year
  Sex: Female

DRUGS (10)
  1. ALBUTEROL [Interacting]
     Active Substance: ALBUTEROL
     Indication: Asthma
     Route: 065
  2. DULOXETINE HYDROCHLORIDE [Interacting]
     Active Substance: DULOXETINE HYDROCHLORIDE
     Indication: Sciatica
     Dosage: 60 MILLIGRAM, QD
     Route: 065
  3. DULOXETINE HYDROCHLORIDE [Interacting]
     Active Substance: DULOXETINE HYDROCHLORIDE
     Indication: Product used for unknown indication
     Dosage: 30 MILLIGRAM, QD
     Route: 065
  4. DULOXETINE HYDROCHLORIDE [Interacting]
     Active Substance: DULOXETINE HYDROCHLORIDE
     Route: 065
  5. DULOXETINE HYDROCHLORIDE [Interacting]
     Active Substance: DULOXETINE HYDROCHLORIDE
     Dosage: 30 MILLIGRAM, BID
     Route: 065
  6. SYMBICORT [Interacting]
     Active Substance: BUDESONIDE\FORMOTEROL FUMARATE DIHYDRATE
     Indication: Asthma
  7. SYMBICORT [Interacting]
     Active Substance: BUDESONIDE\FORMOTEROL FUMARATE DIHYDRATE
     Indication: Nasal congestion
  8. XYLOMETAZOLINE [Interacting]
     Active Substance: XYLOMETAZOLINE
     Indication: Nasal congestion
     Route: 065
  9. XYLOMETAZOLINE [Interacting]
     Active Substance: XYLOMETAZOLINE
     Indication: Product used for unknown indication
     Dosage: 1 DOSAGE FORM, QD
     Route: 065
  10. XYLOMETAZOLINE [Interacting]
     Active Substance: XYLOMETAZOLINE
     Dosage: UNK UNK, QD
     Route: 065

REACTIONS (14)
  - Cerebral artery stenosis [Recovered/Resolved]
  - Drug interaction [Recovered/Resolved]
  - Nasal mucosal disorder [Recovered/Resolved]
  - Nasal turbinate hypertrophy [Recovered/Resolved]
  - Rebound nasal congestion [Recovered/Resolved]
  - Reversible cerebral vasoconstriction syndrome [Recovered/Resolved]
  - Rhinorrhoea [Recovered/Resolved]
  - Subarachnoid haemorrhage [Recovered/Resolved]
  - Allergy to animal [Recovered/Resolved]
  - Nasal septum deviation [Recovered/Resolved]
  - Product use in unapproved indication [Recovered/Resolved]
  - Thunderclap headache [Recovered/Resolved]
  - Headache [Recovered/Resolved]
  - Hypertension [Recovered/Resolved]
